FAERS Safety Report 8325004-8 (Version None)
Quarter: 2012Q2

REPORT INFORMATION
  Report Type: 
  Country: None (occurrence: None)
  Receive Date: 20120427
  Receipt Date: 20120413
  Transmission Date: 20120825
  Serious: Yes (Other)
  Sender: FDA-Public Use
  Company Number: JP-2012-14697

PATIENT
  Age: 81 Year
  Sex: Female
  Weight: 43 kg

DRUGS (10)
  1. SAMSCA [Suspect]
     Indication: CARDIAC FAILURE CHRONIC
     Dosage: 15 MG MILLIGRAM(S), QD, ORAL
     Route: 048
     Dates: start: 20110905, end: 20110910
  2. PLAVIX [Concomitant]
  3. KALIAID (CALCIUM POLYSTYRENE SULFONATE) [Concomitant]
  4. LANSOPRAZOLE [Concomitant]
  5. MUCOSOLVAN (AMBROXOL HYDROCHLORIDE) [Concomitant]
  6. SIGMART (NICORANDIL) [Concomitant]
  7. PANTOSIN (PANTETHINE) [Concomitant]
  8. LASIX [Suspect]
     Indication: CARDIAC FAILURE CHRONIC
     Dosage: 100 MG MILLIGRAM(S), QD, INTRAVENOUS
     Route: 042
     Dates: start: 20110823, end: 20110914
  9. ASPIRIN [Concomitant]
  10. LIPITOR [Concomitant]

REACTIONS (2)
  - HYPERNATRAEMIA [None]
  - DRUG INEFFECTIVE [None]
